FAERS Safety Report 20910711 (Version 1)
Quarter: 2022Q2

REPORT INFORMATION
  Report Type: Spontaneous
  Country: CN (occurrence: None)
  Receive Date: 20220603
  Receipt Date: 20220603
  Transmission Date: 20220720
  Serious: Yes (Other)
  Sender: FDA-Public Use
  Company Number: CN-ROCHE-3105406

PATIENT
  Age: 51 Year
  Sex: Female

DRUGS (4)
  1. PERJETA [Suspect]
     Active Substance: PERTUZUMAB
     Indication: Invasive lobular breast carcinoma
     Route: 041
     Dates: start: 20220321, end: 20220321
  2. HERCEPTIN [Suspect]
     Active Substance: TRASTUZUMAB
     Indication: Invasive lobular breast carcinoma
     Route: 041
     Dates: start: 20220321, end: 20220321
  3. CYCLOPHOSPHAMIDE [Suspect]
     Active Substance: CYCLOPHOSPHAMIDE
     Indication: Invasive lobular breast carcinoma
     Route: 041
     Dates: start: 20220321, end: 20220321
  4. DEXRAZOXANE [Concomitant]
     Active Substance: DEXRAZOXANE
     Indication: Invasive lobular breast carcinoma
     Route: 041
     Dates: start: 20220321, end: 20220321

REACTIONS (1)
  - Myelosuppression [Recovering/Resolving]

NARRATIVE: CASE EVENT DATE: 20220321
